FAERS Safety Report 5602585-6 (Version None)
Quarter: 2008Q1

REPORT INFORMATION
  Report Type: 
  Country: None (occurrence: None)
  Receive Date: 20080125
  Receipt Date: 20080116
  Transmission Date: 20080703
  Serious: Yes (Hospitalization, Disabling)
  Sender: FDA-Public Use
  Company Number: FI-ROCHE-542108

PATIENT
  Age: 73 Year
  Sex: Female
  Weight: 73 kg

DRUGS (4)
  1. BONIVA [Suspect]
     Indication: OSTEOPENIA
     Route: 048
     Dates: start: 20080101
  2. PREDNISOLONE [Concomitant]
     Dosage: FREQUENCY REPORTED AS EVERY OTHER DAY.
     Route: 048
  3. CELEBRA [Concomitant]
     Indication: PAIN
     Route: 048
  4. 1 CONCOMITANT DRUG [Concomitant]
     Indication: RHEUMATOID ARTHRITIS
     Dosage: DRUG REPORTED AS CHRYSOTHERAPY.
     Route: 030

REACTIONS (3)
  - BALANCE DISORDER [None]
  - DYSPNOEA [None]
  - HYPOAESTHESIA [None]
